FAERS Safety Report 8194715 (Version 2)
Quarter: 2013Q2

REPORT INFORMATION
  Report Type: Spontaneous
  Country: FR (occurrence: None)
  Receive Date: 20111004
  Receipt Date: 20130412
  Transmission Date: 20140414
  Serious: Yes (Other)
  Sender: FDA-Public Use
  Company Number: 2011029907

PATIENT
  Age: 30 Year
  Sex: Female

DRUGS (1)
  1. RHOPHYLAC [Suspect]
     Dosage: 200 UG, QD, INTRAMUSCULAR
     Route: 030
     Dates: start: 20110630, end: 20110630

REACTIONS (1)
  - ABNORMAL BEHAVIOUR [None]
